FAERS Safety Report 5456350-3 (Version None)
Quarter: 2007Q3

REPORT INFORMATION
  Report Type: 
  Country: None (occurrence: None)
  Receive Date: 20070918
  Receipt Date: 20070913
  Transmission Date: 20080115
  Serious: Yes (Life-Threatening, Hospitalization)
  Sender: FDA-Public Use
  Company Number: PHRM2007FR02200

PATIENT
  Age: 77 Year
  Sex: Male

DRUGS (8)
  1. KARDEGIC [Concomitant]
     Dosage: 75 MG, QD
     Route: 048
  2. ZOCOR [Concomitant]
     Dosage: 40 MG, QD
  3. PLAVIX [Concomitant]
     Dosage: 1 DF, QD
     Route: 048
  4. AMLOR [Concomitant]
     Dosage: 5 MG, QD
     Route: 048
  5. VASTAREL [Concomitant]
     Dosage: 70 MG, QD
  6. NEXIUM [Concomitant]
     Dosage: 20 MG, QD
  7. COTAREG [Suspect]
     Dosage: 1 DF, QD
     Route: 048
     Dates: end: 20070308
  8. PREVISCAN [Suspect]
     Indication: ATRIAL FIBRILLATION
     Dosage: 20 MG, QD
     Route: 048
     Dates: end: 20070308

REACTIONS (6)
  - ANAEMIA [None]
  - CHEST PAIN [None]
  - FALL [None]
  - HAEMOGLOBIN DECREASED [None]
  - HYPOKALAEMIA [None]
  - INTERNATIONAL NORMALISED RATIO INCREASED [None]
